FAERS Safety Report 17245712 (Version 1)
Quarter: 2020Q1

REPORT INFORMATION
  Report Type: Spontaneous
  Country: CN (occurrence: CN)
  Receive Date: 20200108
  Receipt Date: 20200108
  Transmission Date: 20200409
  Serious: Yes (Other)
  Sender: FDA-Public Use
  Company Number: CN-ASTRAZENECA-2020SE00896

PATIENT
  Age: 83 Year
  Sex: Female

DRUGS (1)
  1. IRESSA [Suspect]
     Active Substance: GEFITINIB
     Indication: NON-SMALL CELL LUNG CANCER
     Dosage: UNKNOWN
     Route: 048

REACTIONS (2)
  - Drug resistance [Unknown]
  - Malignant neoplasm progression [Unknown]
